FAERS Safety Report 25122667 (Version 1)
Quarter: 2025Q1

REPORT INFORMATION
  Report Type: Spontaneous
  Country: US (occurrence: US)
  Receive Date: 20250326
  Receipt Date: 20250326
  Transmission Date: 20250408
  Serious: No
  Sender: ALCON
  Company Number: US-ALCON LABORATORIES-ALC2024US004322

PATIENT
  Age: 80 Year
  Sex: Male

DRUGS (1)
  1. PATADAY ONCE DAILY RELIEF [Suspect]
     Active Substance: OLOPATADINE HYDROCHLORIDE
     Indication: Product used for unknown indication
     Route: 047

REACTIONS (2)
  - Eye irritation [Recovered/Resolved]
  - Eye discharge [Recovered/Resolved]
